FAERS Safety Report 5464047-9 (Version None)
Quarter: 2007Q3

REPORT INFORMATION
  Report Type: 
  Country: None (occurrence: None)
  Receive Date: 20070921
  Receipt Date: 20070914
  Transmission Date: 20080115
  Serious: Yes (Death, Hospitalization)
  Sender: FDA-Public Use
  Company Number: BR-BAYER-200715346GDS

PATIENT
  Age: 85 Year
  Sex: Female

DRUGS (2)
  1. CIPRO [Suspect]
     Indication: CYSTITIS
     Route: 048
  2. CIPRO [Suspect]
     Route: 065

REACTIONS (2)
  - GASTRIC DISORDER [None]
  - PULMONARY EMBOLISM [None]
